FAERS Safety Report 8321510-0 (Version None)
Quarter: 2012Q2

REPORT INFORMATION
  Report Type: 
  Country: None (occurrence: None)
  Receive Date: 20120430
  Receipt Date: 20120430
  Transmission Date: 20120825
  Serious: Yes (Life-Threatening, Hospitalization, Other)
  Sender: FDA-Public Use
  Company Number: None

PATIENT
  Age: 10 Year
  Sex: Male
  Weight: 34.019 kg

DRUGS (2)
  1. SULFAMETHOXAZOLE [Suspect]
     Indication: SINUSITIS
     Dosage: 3 TSP
     Route: 048
     Dates: start: 20120309, end: 20120320
  2. TRIMETHOPRIN -SUSPENSION LIQUID- [Concomitant]

REACTIONS (13)
  - SCAR [None]
  - RASH [None]
  - TOXIC EPIDERMAL NECROLYSIS [None]
  - OROPHARYNGEAL BLISTERING [None]
  - DYSPNOEA [None]
  - MENTAL IMPAIRMENT [None]
  - DRUG HYPERSENSITIVITY [None]
  - PSYCHIATRIC SYMPTOM [None]
  - DRY EYE [None]
  - HEADACHE [None]
  - PYREXIA [None]
  - STEVENS-JOHNSON SYNDROME [None]
  - EDUCATIONAL PROBLEM [None]
